FAERS Safety Report 23617971 (Version 1)
Quarter: 2024Q1

REPORT INFORMATION
  Report Type: Spontaneous
  Country: CZ (occurrence: CZ)
  Receive Date: 20240311
  Receipt Date: 20240311
  Transmission Date: 20240410
  Serious: Yes (Disabling, Other)
  Sender: FDA-Public Use
  Company Number: None

PATIENT
  Age: 43 Year
  Sex: Male
  Weight: 73 kg

DRUGS (1)
  1. LEVOFLOXACIN [Suspect]
     Active Substance: LEVOFLOXACIN
     Indication: Cystitis noninfective
     Dosage: 500 MILLIGRAM,BID (ONCE IN 12 HOURS, FILM-COATED TABLET)
     Route: 048
     Dates: start: 20231123, end: 20231128

REACTIONS (4)
  - Joint injury [Recovered/Resolved]
  - Tendon pain [Recovered/Resolved]
  - Paraesthesia [Recovered/Resolved]
  - Tissue rupture [Recovered/Resolved]

NARRATIVE: CASE EVENT DATE: 20231128
